FAERS Safety Report 8265066-X (Version None)
Quarter: 2012Q2

REPORT INFORMATION
  Report Type: 
  Country: None (occurrence: None)
  Receive Date: 20120406
  Receipt Date: 20120323
  Transmission Date: 20120825
  Serious: Yes (Other)
  Sender: FDA-Public Use
  Company Number: JP-ROCHE-1052229

PATIENT
  Age: 7 Decade
  Sex: Male

DRUGS (2)
  1. VESANOID [Suspect]
     Indication: ACUTE PROMYELOCYTIC LEUKAEMIA
     Dosage: DOSAGE IS UNCERTAIN.
     Route: 048
     Dates: start: 20120301, end: 20120302
  2. VESANOID [Suspect]
     Dosage: DOSAGE IS UNCERTAIN.
     Route: 048
     Dates: start: 20120303, end: 20120303

REACTIONS (4)
  - PYREXIA [None]
  - PLEURAL HAEMORRHAGE [None]
  - PLEURAL EFFUSION [None]
  - OXYGEN SATURATION DECREASED [None]
